FAERS Safety Report 20995059 (Version 2)
Quarter: 2022Q2

REPORT INFORMATION
  Report Type: Spontaneous
  Country: US (occurrence: US)
  Receive Date: 20220622
  Receipt Date: 20220628
  Transmission Date: 20220721
  Serious: Yes (Death, Congenital Anomaly)
  Sender: FDA-Public Use
  Company Number: US-BioHaven Pharmaceuticals-2022BHV001624

PATIENT

DRUGS (1)
  1. NURTEC ODT [Suspect]
     Active Substance: RIMEGEPANT SULFATE
     Indication: Migraine
     Route: 065

REACTIONS (1)
  - Foetal chromosome abnormality [Fatal]

NARRATIVE: CASE EVENT DATE: 20220302
